FAERS Safety Report 4477716-4 (Version None)
Quarter: 2004Q4

REPORT INFORMATION
  Report Type: 
  Country: None (occurrence: None)
  Receive Date: 20041014
  Receipt Date: 20040702
  Transmission Date: 20050328
  Serious: Yes (Hospitalization)
  Sender: FDA-Public Use
  Company Number: 0407-199

PATIENT
  Age: 3 Day
  Sex: Male

DRUGS (5)
  1. CUROSURF [Suspect]
     Dosage: 1-INTRATRACHEAL
     Route: 039
     Dates: start: 20030610, end: 20030611
  2. FUROSEMIDE [Concomitant]
  3. AMINOPHYLLINE [Concomitant]
  4. DIAZEPAM [Concomitant]
  5. MORPHINE [Concomitant]

REACTIONS (4)
  - ASPIRATION [None]
  - NEONATAL DISORDER [None]
  - PULMONARY HAEMORRHAGE [None]
  - TRACHEAL INJURY [None]
